FAERS Safety Report 6524529-5 (Version None)
Quarter: 2010Q1

REPORT INFORMATION
  Report Type: 
  Country: None (occurrence: None)
  Receive Date: 20100104
  Receipt Date: 20091222
  Transmission Date: 20100710
  Serious: Yes (Hospitalization)
  Sender: FDA-Public Use
  Company Number: US-ROCHE-452717

PATIENT
  Sex: Male

DRUGS (3)
  1. PEG-INTERFERON A-2A (RO 25-8310) [Suspect]
     Dosage: FORM REPORTED AS LIQUID. LAST DOSE BEFORE SAE: 02 MAY 2006
     Route: 058
     Dates: start: 20060424
  2. RIBAVIRIN [Suspect]
     Dosage: FREQUENCY REPORTED AS DAILY DATE OF LAST DOSE PRIOR TO SAE: 09 MAY 2006
     Route: 048
     Dates: start: 20060424
  3. RIBAVIRIN [Suspect]
     Dosage: 3 DOSES WERE MISSED DURING HOSPITALIZATION.
     Route: 048

REACTIONS (1)
  - CHOLECYSTITIS [None]
